FAERS Safety Report 7572840-1 (Version None)
Quarter: 2011Q2

REPORT INFORMATION
  Report Type: 
  Country: None (occurrence: None)
  Receive Date: 20110627
  Receipt Date: 20110614
  Transmission Date: 20111010
  Serious: Yes (Other)
  Sender: FDA-Public Use
  Company Number: US-AMGEN-USASP2011011903

PATIENT
  Sex: Female

DRUGS (6)
  1. WHOLE BLOOD [Concomitant]
  2. ANTINEOPLASTIC AGENTS [Concomitant]
  3. ARANESP [Suspect]
     Indication: ANAEMIA
  4. PROCRIT [Suspect]
     Indication: ANAEMIA
  5. FERROUS SULFATE TAB [Concomitant]
  6. ALLOPURINOL [Concomitant]
     Dosage: UNK

REACTIONS (2)
  - MYELODYSPLASTIC SYNDROME [None]
  - TRANSFUSION [None]
